FAERS Safety Report 8261579-5 (Version None)
Quarter: 2012Q2

REPORT INFORMATION
  Report Type: 
  Country: None (occurrence: None)
  Receive Date: 20120402
  Receipt Date: 20120322
  Transmission Date: 20120825
  Serious: Yes (Other)
  Sender: FDA-Public Use
  Company Number: 2012P1010484

PATIENT
  Age: 28 Year
  Sex: Male
  Weight: 40 kg

DRUGS (4)
  1. ISONIAZID [Suspect]
     Indication: PULMONARY TUBERCULOSIS
     Dosage: 5 MG/KG; QD;
  2. STREPTOMYCIN [Concomitant]
  3. RIFAMPICIN [Concomitant]
  4. PYRAZINAMIDE [Concomitant]

REACTIONS (14)
  - ANTINUCLEAR ANTIBODY POSITIVE [None]
  - WHITE BLOOD CELL COUNT INCREASED [None]
  - MUSCLE CONTRACTIONS INVOLUNTARY [None]
  - MYALGIA [None]
  - PULMONARY TUBERCULOMA [None]
  - ERYTHEMA [None]
  - PAIN IN EXTREMITY [None]
  - JOINT SWELLING [None]
  - MUSCULAR WEAKNESS [None]
  - ARTHRALGIA [None]
  - ALANINE AMINOTRANSFERASE INCREASED [None]
  - MYOKYMIA [None]
  - MYOPATHY [None]
  - ERECTILE DYSFUNCTION [None]
